FAERS Safety Report 8126013-4 (Version None)
Quarter: 2012Q1

REPORT INFORMATION
  Report Type: 
  Country: None (occurrence: None)
  Receive Date: 20120209
  Receipt Date: 20120201
  Transmission Date: 20120608
  Serious: Yes (Hospitalization)
  Sender: FDA-Public Use
  Company Number: CH-ROCHE-1030427

PATIENT
  Age: 61 Year
  Sex: Male

DRUGS (6)
  1. DEXAMETHASONE [Suspect]
     Indication: PRODUCT USED FOR UNKNOWN INDICATION
  2. AVASTIN [Suspect]
     Indication: LUNG ADENOCARCINOMA METASTATIC
     Dosage: DATE OF LAST DOSE PRIOR TO SAE:14/12/2011
     Route: 042
     Dates: start: 20110808
  3. PEMETREXED DISODIUM [Suspect]
     Indication: LUNG ADENOCARCINOMA METASTATIC
     Dosage: DATE OF LAST DOSE PRIOR TO SAE:14/12/2011
     Route: 042
     Dates: start: 20110808
  4. CISPLATIN [Suspect]
     Indication: LUNG ADENOCARCINOMA METASTATIC
     Dosage: DATE OF LAST DOSE PRIOR TO SAE:12/OCT/2011
     Route: 042
     Dates: start: 20110808
  5. OXAZEPAM [Concomitant]
     Route: 048
     Dates: start: 20110808
  6. HYDROMORPHONE HCL [Concomitant]
     Route: 048
     Dates: start: 20111230

REACTIONS (1)
  - CONFUSIONAL STATE [None]
